FAERS Safety Report 6354326-5 (Version None)
Quarter: 2009Q3

REPORT INFORMATION
  Report Type: 
  Country: None (occurrence: None)
  Receive Date: 20090909
  Receipt Date: 20090826
  Transmission Date: 20100115
  Serious: Yes (Hospitalization)
  Sender: FDA-Public Use
  Company Number: 2009PL000264

PATIENT
  Age: 51 Year
  Sex: Male

DRUGS (10)
  1. IMURAN [Suspect]
     Indication: IMMUNOSUPPRESSION
     Dosage: 150 MG;QD;
     Dates: start: 20081030, end: 20090119
  2. MYCOPHENOLATE MOFETIL [Suspect]
     Indication: PROPHYLAXIS AGAINST TRANSPLANT REJECTION
     Dates: start: 20090430
  3. NORVASC [Concomitant]
  4. ZETIA [Concomitant]
  5. PREDNISONE [Concomitant]
  6. ROCALTROL [Concomitant]
  7. COLCHICINE [Concomitant]
  8. COREG [Concomitant]
  9. CARDURA /00639301/ [Concomitant]
  10. CYCLOSPORINE [Concomitant]

REACTIONS (11)
  - ANAEMIA [None]
  - BLOOD URIC ACID INCREASED [None]
  - BONE MARROW FAILURE [None]
  - BONE PAIN [None]
  - DRUG EFFECT DECREASED [None]
  - PAIN IN EXTREMITY [None]
  - PRODUCT SUBSTITUTION ISSUE [None]
  - PYREXIA [None]
  - RENAL DISORDER [None]
  - RENAL IMPAIRMENT [None]
  - TRANSPLANT FAILURE [None]
